FAERS Safety Report 4637915-5 (Version None)
Quarter: 2005Q2

REPORT INFORMATION
  Report Type: 
  Country: None (occurrence: None)
  Receive Date: 20050328
  Receipt Date: 20050119
  Transmission Date: 20051028
  Serious: No
  Sender: FDA-Public Use
  Company Number: USA050188937

PATIENT
  Age: 21 Year
  Sex: Male

DRUGS (3)
  1. STRATTERA [Suspect]
     Dosage: 25 MG/2 DAY
  2. DEXEDRINE (DEXAMETAMINE SULFATE) [Concomitant]
  3. RITALIN (METHYLPHENIDATE HYROCHLORIDE) [Concomitant]

REACTIONS (1)
  - SUICIDAL IDEATION [None]
